FAERS Safety Report 7310237-X (Version None)
Quarter: 2011Q1

REPORT INFORMATION
  Report Type: 
  Country: None (occurrence: None)
  Receive Date: 20110224
  Receipt Date: 20110221
  Transmission Date: 20110831
  Serious: Yes (Other)
  Sender: FDA-Public Use
  Company Number: US-PFIZER INC-2011036781

PATIENT
  Sex: Female
  Weight: 104 kg

DRUGS (1)
  1. ZOLOFT [Suspect]
     Indication: DEPRESSION
     Dosage: UNK
     Route: 048
     Dates: end: 20100101

REACTIONS (5)
  - TREMOR [None]
  - NIGHT SWEATS [None]
  - SUICIDAL IDEATION [None]
  - INSOMNIA [None]
  - WEIGHT INCREASED [None]
